FAERS Safety Report 4354170-4 (Version None)
Quarter: 2004Q2

REPORT INFORMATION
  Report Type: 
  Country: None (occurrence: None)
  Receive Date: 20040506
  Receipt Date: 20040309
  Transmission Date: 20050107
  Serious: Yes (Death, Other)
  Sender: FDA-Public Use
  Company Number: PHHO2004CA03639

PATIENT
  Age: 37 Year
  Sex: Male

DRUGS (5)
  1. CLOZARIL [Suspect]
     Indication: SCHIZOPHRENIA
     Dosage: 150 MG AM + 400 MG HS
     Dates: start: 19950516
  2. COGENTIN [Concomitant]
     Dosage: 2 MG, UNK
  3. CLONAZEPAM [Concomitant]
     Dosage: .5 MG, TID
  4. PERPHENAZINE [Concomitant]
     Dosage: 8 MG, HS
  5. IMIPRAMINE [Concomitant]
     Dosage: 75 MG, HS

REACTIONS (6)
  - ANAEMIA [None]
  - COAGULOPATHY [None]
  - HYPERNATRAEMIA [None]
  - LUNG ABSCESS [None]
  - PNEUMONIA BACTERIAL [None]
  - SUDDEN DEATH [None]
